FAERS Safety Report 4879828-X (Version None)
Quarter: 2006Q1

REPORT INFORMATION
  Report Type: 
  Country: None (occurrence: None)
  Receive Date: 20060111
  Receipt Date: 20060103
  Transmission Date: 20060701
  Serious: Yes (Hospitalization, Other)
  Sender: FDA-Public Use
  Company Number: 2005-US-00227

PATIENT
  Age: 47 Year
  Sex: Female
  Weight: 79.3795 kg

DRUGS (1)
  1. CLOZAPINE [Suspect]
     Indication: SCHIZOPHRENIA
     Dosage: 600 MG, QD, ORAL
     Route: 048
     Dates: start: 20050701, end: 20050901

REACTIONS (13)
  - BLOOD GLUCOSE INCREASED [None]
  - CHEST PAIN [None]
  - DRUG LEVEL INCREASED [None]
  - DYSPNOEA [None]
  - ELECTROCARDIOGRAM ST-T CHANGE [None]
  - HYPERHIDROSIS [None]
  - LETHARGY [None]
  - PALPITATIONS [None]
  - PYREXIA [None]
  - RASH [None]
  - TACHYCARDIA [None]
  - URINARY TRACT INFECTION [None]
  - UROSEPSIS [None]
